FAERS Safety Report 15921065 (Version 1)
Quarter: 2019Q1

REPORT INFORMATION
  Report Type: Report from Study
  Country: US (occurrence: US)
  Receive Date: 20190205
  Receipt Date: 20190205
  Transmission Date: 20190417
  Serious: Yes (Hospitalization)
  Sender: FDA-Public Use
  Company Number: US-BAUSCH-BL-2019-003675

PATIENT
  Sex: Female
  Weight: 63.56 kg

DRUGS (1)
  1. XIFAXAN [Suspect]
     Active Substance: RIFAXIMIN
     Indication: LIVER DISORDER
     Route: 065
     Dates: start: 2013

REACTIONS (8)
  - Chronic hepatic failure [Unknown]
  - Renal disorder [Unknown]
  - Urinary tract infection [Unknown]
  - Mental status changes [Unknown]
  - Ascites [Unknown]
  - Aphasia [Unknown]
  - Ammonia abnormal [Unknown]
  - Somnolence [Unknown]
